FAERS Safety Report 9482030 (Version 1)
Quarter: 2013Q3

REPORT INFORMATION
  Report Type: Spontaneous
  Country: US (occurrence: US)
  Receive Date: 20130828
  Receipt Date: 20130828
  Transmission Date: 20140515
  Serious: No
  Sender: FDA-Public Use
  Company Number: US-FOUGERA-2013FO000101

PATIENT
  Age: 44 Year
  Sex: Female

DRUGS (1)
  1. NITRO-BID [Suspect]
     Indication: BURNS THIRD DEGREE
     Route: 061
     Dates: start: 2013, end: 2013

REACTIONS (3)
  - Infection [Recovered/Resolved]
  - Headache [Recovered/Resolved]
  - Off label use [Recovered/Resolved]
